FAERS Safety Report 5734250-9 (Version None)
Quarter: 2008Q2

REPORT INFORMATION
  Report Type: 
  Country: None (occurrence: None)
  Receive Date: 20080512
  Receipt Date: 20080505
  Transmission Date: 20081010
  Serious: Yes (Other)
  Sender: FDA-Public Use
  Company Number: DE-BAYER-200817671GPV

PATIENT
  Age: 38 Year
  Sex: Female
  Weight: 100 kg

DRUGS (2)
  1. BETAFERON [Suspect]
     Indication: MULTIPLE SCLEROSIS
     Route: 058
     Dates: start: 20080201, end: 20080215
  2. BETAFERON [Suspect]
     Route: 058
     Dates: start: 20080215, end: 20080229

REACTIONS (5)
  - FATIGUE [None]
  - FEELING COLD [None]
  - HEADACHE [None]
  - LIVER FUNCTION TEST ABNORMAL [None]
  - NAUSEA [None]
